FAERS Safety Report 5198828-6 (Version None)
Quarter: 2007Q1

REPORT INFORMATION
  Report Type: 
  Country: None (occurrence: None)
  Receive Date: 20070104
  Receipt Date: 20061227
  Transmission Date: 20070707
  Serious: Yes (Other)
  Sender: FDA-Public Use
  Company Number: NL-GLAXOSMITHKLINE-B0452712A

PATIENT
  Age: 32 Year
  Sex: Female

DRUGS (2)
  1. LAMOTRIGINE [Suspect]
     Indication: EPILEPSY
     Dosage: 75MG PER DAY
     Route: 065
     Dates: start: 20061006, end: 20061010
  2. SEROQUEL [Concomitant]
     Dosage: 300MG PER DAY
     Route: 065
     Dates: start: 20060804, end: 20061016

REACTIONS (11)
  - ANXIETY [None]
  - APHASIA [None]
  - DEPERSONALISATION [None]
  - DEREALISATION [None]
  - DIZZINESS [None]
  - DRY MOUTH [None]
  - HALLUCINATION, VISUAL [None]
  - MUSCULOSKELETAL STIFFNESS [None]
  - SLEEP DISORDER [None]
  - SOMNOLENCE [None]
  - TRISMUS [None]
